FAERS Safety Report 6084729-8 (Version None)
Quarter: 2009Q1

REPORT INFORMATION
  Report Type: 
  Country: None (occurrence: None)
  Receive Date: 20090217
  Receipt Date: 20090130
  Transmission Date: 20090719
  Serious: Yes (Life-Threatening, Other)
  Sender: FDA-Public Use
  Company Number: 2009AP000531

PATIENT
  Age: 79 Year
  Sex: Female

DRUGS (3)
  1. LAMOTRIGINE [Suspect]
     Indication: EPILEPSY
     Dosage: 25 MG; PO; BID
     Route: 048
     Dates: start: 20080919, end: 20081010
  2. VALPROATE SODIUM [Concomitant]
  3. SIMVASTATIN [Concomitant]

REACTIONS (2)
  - BONE MARROW FAILURE [None]
  - INCREASED TENDENCY TO BRUISE [None]
